FAERS Safety Report 13381982 (Version 1)
Quarter: 2017Q1

REPORT INFORMATION
  Report Type: Spontaneous
  Country: US (occurrence: US)
  Receive Date: 20170329
  Receipt Date: 20170329
  Transmission Date: 20170429
  Serious: No
  Sender: FDA-Public Use
  Company Number: US-MYLANLABS-2016M1058820

PATIENT
  Sex: Female

DRUGS (1)
  1. CHLORTHALIDONE TABLETS USP [Suspect]
     Active Substance: CHLORTHALIDONE
     Indication: HYPERTENSION
     Dosage: UNK
     Dates: start: 2016, end: 2016

REACTIONS (1)
  - Drug effect increased [Recovered/Resolved]

NARRATIVE: CASE EVENT DATE: 2016
